FAERS Safety Report 6344249-X (Version None)
Quarter: 2009Q3

REPORT INFORMATION
  Report Type: 
  Country: None (occurrence: None)
  Receive Date: 20090908
  Receipt Date: 20090902
  Transmission Date: 20100115
  Serious: Yes (Life-Threatening)
  Sender: FDA-Public Use
  Company Number: FR-ASTRAZENECA-2009SE11393

PATIENT
  Age: 26768 Day
  Sex: Female

DRUGS (5)
  1. MOPRAL [Suspect]
     Indication: ABDOMINAL PAIN UPPER
     Route: 048
  2. FLUDEX [Concomitant]
  3. TEVETEN [Concomitant]
  4. ASPIRIN [Concomitant]
  5. LEXOMIL [Concomitant]

REACTIONS (4)
  - ANAPHYLACTIC SHOCK [None]
  - EYELID OEDEMA [None]
  - GENERALISED ERYTHEMA [None]
  - PRURITUS [None]
